FAERS Safety Report 6618892-4 (Version None)
Quarter: 2010Q1

REPORT INFORMATION
  Report Type: 
  Country: None (occurrence: None)
  Receive Date: 20100308
  Receipt Date: 20100224
  Transmission Date: 20100710
  Serious: Yes (Death, Hospitalization, Other)
  Sender: FDA-Public Use
  Company Number: JP-WYE-H13869010

PATIENT
  Age: 83 Year
  Sex: Male

DRUGS (2)
  1. ANCARON [Suspect]
     Dosage: DOSE UNKNOWN
     Route: 048
     Dates: end: 20080928
  2. PANALDINE [Suspect]
     Dosage: DOSE UNKNOWN
     Route: 065
     Dates: end: 20080928

REACTIONS (5)
  - BONE MARROW FAILURE [None]
  - CYTOMEGALOVIRUS INFECTION [None]
  - ENDOCARDITIS CANDIDA [None]
  - PANCYTOPENIA [None]
  - RENAL FAILURE [None]
